FAERS Safety Report 5304459-7 (Version None)
Quarter: 2007Q2

REPORT INFORMATION
  Report Type: 
  Country: None (occurrence: None)
  Receive Date: 20070423
  Receipt Date: 20070417
  Transmission Date: 20071010
  Serious: Yes (Hospitalization)
  Sender: FDA-Public Use
  Company Number: GB-BRISTOL-MYERS SQUIBB COMPANY-13755343

PATIENT
  Age: 86 Year

DRUGS (1)
  1. MITOMYCIN-C BULK POWDER [Suspect]
     Indication: BLADDER CANCER
     Route: 043

REACTIONS (3)
  - BLADDER PERFORATION [None]
  - BONE MARROW FAILURE [None]
  - NEUTROPENIA [None]
